FAERS Safety Report 9526526 (Version 1)
Quarter: 2013Q3

REPORT INFORMATION
  Report Type: Spontaneous
  Country: BR (occurrence: BR)
  Receive Date: 20130916
  Receipt Date: 20130916
  Transmission Date: 20140515
  Serious: Yes (Other)
  Sender: FDA-Public Use
  Company Number: BR-ELI_LILLY_AND_COMPANY-BR201309004563

PATIENT
  Age: 56 Year
  Sex: Male
  Weight: 82 kg

DRUGS (4)
  1. EFFIENT [Suspect]
     Indication: ANTIPLATELET THERAPY
     Dosage: 10 MG, QD
     Route: 048
     Dates: start: 201208, end: 20130903
  2. TRIMETAZIDINE [Concomitant]
     Dosage: UNKNOWN
     Route: 065
  3. ATENOLOL [Concomitant]
     Dosage: UNKNOWN
     Route: 065
  4. LOSARTAN [Concomitant]
     Dosage: UNKNOWN
     Route: 065

REACTIONS (1)
  - Thrombosis in device [Unknown]
